FAERS Safety Report 6808436-6 (Version None)
Quarter: 2010Q2

REPORT INFORMATION
  Report Type: 
  Country: None (occurrence: None)
  Receive Date: 20100629
  Receipt Date: 20090701
  Transmission Date: 20101027
  Serious: No
  Sender: FDA-Public Use
  Company Number: US-PFIZER INC-2009215917

PATIENT
  Sex: Male

DRUGS (6)
  1. VIAGRA [Suspect]
     Indication: ERECTILE DYSFUNCTION
  2. LIPITOR [Concomitant]
  3. AVAPRO [Concomitant]
  4. DECADRON [Concomitant]
  5. SYNTHROID [Concomitant]
  6. TESTOSTERONE CIPIONATE [Concomitant]

REACTIONS (1)
  - DRUG INEFFECTIVE [None]
